FAERS Safety Report 7319882-9 (Version None)
Quarter: 2011Q1

REPORT INFORMATION
  Report Type: 
  Country: None (occurrence: None)
  Receive Date: 20110228
  Receipt Date: 20101105
  Transmission Date: 20110831
  Serious: No
  Sender: FDA-Public Use
  Company Number: A0891862A

PATIENT
  Age: 46 Year
  Sex: Female

DRUGS (1)
  1. LAMICTAL [Suspect]
     Route: 048
     Dates: start: 20070716

REACTIONS (2)
  - OVERDOSE [None]
  - DRUG DISPENSING ERROR [None]
